FAERS Safety Report 4414139-8 (Version None)
Quarter: 2004Q3

REPORT INFORMATION
  Report Type: 
  Country: None (occurrence: None)
  Receive Date: 20040728
  Receipt Date: 20040715
  Transmission Date: 20050211
  Serious: Yes (Death)
  Sender: FDA-Public Use
  Company Number: 04H-143-0267306-00

PATIENT
  Age: 42 Year
  Sex: Female

DRUGS (2)
  1. POTASSIUM CHLORIDE [Suspect]
     Indication: MEDICATION ERROR
     Dosage: 0.3 ML, ONCE, INTRATHECAL
     Route: 037
  2. GLUCOSE INJECTION [Concomitant]

REACTIONS (9)
  - CYANOSIS [None]
  - DRUG TOXICITY [None]
  - HYPERTENSION [None]
  - LEFT VENTRICULAR FAILURE [None]
  - MEDICATION ERROR [None]
  - MUSCLE CRAMP [None]
  - PAIN [None]
  - RESTLESSNESS [None]
  - TACHYPNOEA [None]
